FAERS Safety Report 7829160-7 (Version None)
Quarter: 2011Q4

REPORT INFORMATION
  Report Type: 
  Country: None (occurrence: None)
  Receive Date: 20111020
  Receipt Date: 20111012
  Transmission Date: 20120403
  Serious: Yes (Disabling, Other)
  Sender: FDA-Public Use
  Company Number: PHHY2011US14323

PATIENT
  Sex: Female
  Weight: 63 kg

DRUGS (5)
  1. GILENYA [Suspect]
     Dosage: 0.5 MG, QOD
     Route: 048
     Dates: end: 20110221
  2. VESICARE [Concomitant]
     Indication: HYPERTONIC BLADDER
     Dosage: 1 DF, DAILY
     Route: 048
     Dates: start: 20101019
  3. GILENYA [Suspect]
     Indication: MULTIPLE SCLEROSIS
     Dosage: 0.5 MG, DAILY
     Route: 048
     Dates: start: 20110211, end: 20110212
  4. REBIF [Suspect]
     Dosage: UNK UKN, UNK
  5. KARIVA 28 [Concomitant]
     Dosage: 1 DF, DAILY

REACTIONS (9)
  - DEAFNESS UNILATERAL [None]
  - VERTIGO [None]
  - VOMITING [None]
  - INCORRECT DOSE ADMINISTERED [None]
  - ABDOMINAL DISCOMFORT [None]
  - DIZZINESS [None]
  - NAUSEA [None]
  - BALANCE DISORDER [None]
  - DYSACUSIS [None]
